FAERS Safety Report 7335761-5 (Version None)
Quarter: 2011Q1

REPORT INFORMATION
  Report Type: 
  Country: None (occurrence: None)
  Receive Date: 20110301
  Receipt Date: 20110301
  Transmission Date: 20110831
  Serious: No
  Sender: FDA-Public Use
  Company Number: None

PATIENT
  Age: 52 Year
  Sex: Female
  Weight: 81.6475 kg

DRUGS (1)
  1. FLUOXETINE HCL [Suspect]
     Indication: DEPRESSION
     Dosage: 1 CAPSULE DAILY
     Dates: start: 20100215

REACTIONS (5)
  - MARITAL PROBLEM [None]
  - DEPRESSION [None]
  - ECONOMIC PROBLEM [None]
  - CONDITION AGGRAVATED [None]
  - PATHOLOGICAL GAMBLING [None]
